FAERS Safety Report 5644223-2 (Version None)
Quarter: 2008Q1

REPORT INFORMATION
  Report Type: 
  Country: None (occurrence: None)
  Receive Date: 20080227
  Receipt Date: 20080227
  Transmission Date: 20080703
  Serious: Yes (Hospitalization)
  Sender: FDA-Public Use
  Company Number: None

PATIENT
  Age: 65 Year
  Sex: Male

DRUGS (2)
  1. WARFARIN SODIUM [Suspect]
     Indication: ATRIAL FIBRILLATION
     Dosage: 1MG EVERY DAY PO
     Route: 048
     Dates: start: 20070515, end: 20080103
  2. CIPROFLOXACIN [Suspect]
     Indication: INFECTION
     Dosage: 500MG BID PO
     Route: 048
     Dates: start: 20071226

REACTIONS (8)
  - DIABETIC NEUROPATHY [None]
  - DRUG INTERACTION [None]
  - FALL [None]
  - HAEMATOCRIT DECREASED [None]
  - HAEMOGLOBIN DECREASED [None]
  - HAEMORRHAGE [None]
  - INTERNATIONAL NORMALISED RATIO DECREASED [None]
  - INTERNATIONAL NORMALISED RATIO INCREASED [None]
